FAERS Safety Report 9080959 (Version 1)
Quarter: 2013Q1

REPORT INFORMATION
  Report Type: Spontaneous
  Country: US (occurrence: US)
  Receive Date: 20130130
  Receipt Date: 20130130
  Transmission Date: 20140127
  Serious: No
  Sender: FDA-Public Use
  Company Number: US-ABBOTT-12P-163-0965186-00

PATIENT
  Age: 47 Year
  Sex: Male
  Weight: 60.38 kg

DRUGS (1)
  1. HUMIRA 40 MG/0.8 ML PEN [Suspect]
     Indication: CROHN^S DISEASE
     Route: 058
     Dates: start: 20120730, end: 20120730

REACTIONS (2)
  - Device malfunction [Unknown]
  - Injection site pain [Not Recovered/Not Resolved]
